FAERS Safety Report 6278828-5 (Version None)
Quarter: 2009Q3

REPORT INFORMATION
  Report Type: 
  Country: None (occurrence: None)
  Receive Date: 20090723
  Receipt Date: 20090716
  Transmission Date: 20100115
  Serious: Yes (Hospitalization)
  Sender: FDA-Public Use
  Company Number: US-BIOGENIDEC-2009BI022446

PATIENT
  Age: 39 Year
  Sex: Female
  Weight: 102 kg

DRUGS (2)
  1. TYSABRI [Suspect]
     Indication: MULTIPLE SCLEROSIS
     Route: 042
     Dates: start: 20061121, end: 20070509
  2. SOLU-MEDROL [Concomitant]
     Indication: MULTIPLE SCLEROSIS
     Route: 042
     Dates: start: 20061101, end: 20070601

REACTIONS (10)
  - CARDIAC PERFORATION [None]
  - CENTRAL VENOUS CATHETERISATION [None]
  - CEREBRAL THROMBOSIS [None]
  - CEREBROVASCULAR ACCIDENT [None]
  - COMA [None]
  - LETHARGY [None]
  - MOBILITY DECREASED [None]
  - VEIN DISORDER [None]
  - VISUAL IMPAIRMENT [None]
  - VOMITING [None]
